FAERS Safety Report 17444100 (Version 1)
Quarter: 2020Q1

REPORT INFORMATION
  Report Type: Spontaneous
  Country: US (occurrence: US)
  Receive Date: 20200208
  Receipt Date: 20200208
  Transmission Date: 20200409
  Serious: Yes (Hospitalization)
  Sender: FDA-Public Use
  Company Number: None

PATIENT
  Age: 47 Year
  Sex: Male
  Weight: 101.25 kg

DRUGS (2)
  1. CEFTRIAXONE. [Suspect]
     Active Substance: CEFTRIAXONE
  2. CEPHALEXIN. [Suspect]
     Active Substance: CEPHALEXIN
     Indication: SEXUALLY TRANSMITTED DISEASE
     Route: 058
     Dates: start: 20191216, end: 20191216

REACTIONS (3)
  - Tendon rupture [None]
  - Muscular weakness [None]
  - Product use complaint [None]

NARRATIVE: CASE EVENT DATE: 20200111
